FAERS Safety Report 6911979-8 (Version None)
Quarter: 2010Q3

REPORT INFORMATION
  Report Type: 
  Country: None (occurrence: None)
  Receive Date: 20100806
  Receipt Date: 20071212
  Transmission Date: 20110219
  Serious: Yes (Other)
  Sender: FDA-Public Use
  Company Number: US-PFIZER INC-2007066446

PATIENT
  Sex: Male
  Weight: 93.181 kg

DRUGS (4)
  1. DETROL LA [Suspect]
     Indication: HYPERTONIC BLADDER
     Route: 048
     Dates: start: 20070727
  2. VALIUM [Concomitant]
  3. TRAMADOL HYDROCHLORIDE [Concomitant]
  4. ALLOPURINOL [Concomitant]

REACTIONS (2)
  - GOUT [None]
  - OEDEMA PERIPHERAL [None]
